FAERS Safety Report 7989168-8 (Version None)
Quarter: 2011Q4

REPORT INFORMATION
  Report Type: 
  Country: None (occurrence: None)
  Receive Date: 20111219
  Receipt Date: 20111209
  Transmission Date: 20120403
  Serious: Yes (Other)
  Sender: FDA-Public Use
  Company Number: DE-BRISTOL-MYERS SQUIBB COMPANY-16244725

PATIENT
  Age: 70 Year
  Sex: Male

DRUGS (2)
  1. ENALAPRIL MALEATE [Suspect]
  2. FOSINOPRIL SODIUM [Suspect]
     Indication: HYPERTENSION
     Dosage: 1DF=FOSINORM (FOSINOPRIL)10 MG IN A 2.5 MG DOSE
     Route: 048

REACTIONS (4)
  - MEDICATION ERROR [None]
  - CHEST PAIN [None]
  - ATRIAL FIBRILLATION [None]
  - DYSPNOEA [None]
